FAERS Safety Report 8488041-9 (Version None)
Quarter: 2012Q3

REPORT INFORMATION
  Report Type: 
  Country: None (occurrence: None)
  Receive Date: 20120705
  Receipt Date: 20120622
  Transmission Date: 20120928
  Serious: Yes (Hospitalization, Other)
  Sender: FDA-Public Use
  Company Number: US-CELGENEUS-163-21880-12032090

PATIENT
  Sex: Male

DRUGS (1)
  1. REVLIMID [Suspect]
     Indication: MULTIPLE MYELOMA
     Dosage: 15MG-5MG
     Route: 048
     Dates: start: 20110428, end: 20120101

REACTIONS (3)
  - CARDIAC FAILURE CONGESTIVE [None]
  - DIPLOPIA [None]
  - RASH [None]
